FAERS Safety Report 19305075 (Version 1)
Quarter: 2021Q2

REPORT INFORMATION
  Report Type: Spontaneous
  Country: US (occurrence: US)
  Receive Date: 20210526
  Receipt Date: 20210526
  Transmission Date: 20210717
  Serious: No
  Sender: FDA-Public Use
  Company Number: US-AMGEN-USASP2021079495

PATIENT
  Sex: Male

DRUGS (3)
  1. OTEZLA [Suspect]
     Active Substance: APREMILAST
     Indication: OFF LABEL USE
  2. OTEZLA [Suspect]
     Active Substance: APREMILAST
     Indication: DERMATITIS
  3. OTEZLA [Suspect]
     Active Substance: APREMILAST
     Indication: FUNGAL INFECTION
     Dosage: UNK
     Route: 065
     Dates: start: 202104

REACTIONS (1)
  - Off label use [Unknown]

NARRATIVE: CASE EVENT DATE: 202104
